FAERS Safety Report 4588608-4 (Version None)
Quarter: 2005Q1

REPORT INFORMATION
  Report Type: 
  Country: None (occurrence: None)
  Receive Date: 20050222
  Receipt Date: 20050210
  Transmission Date: 20050727
  Serious: Yes (Death, Other)
  Sender: FDA-Public Use
  Company Number: PHBS2005JP02267

PATIENT
  Age: 18 Year
  Sex: Female

DRUGS (4)
  1. FLUDARABINE PHOSPHATE [Concomitant]
     Dosage: 30 MG/M2/D
  2. MELPHALAN [Concomitant]
     Dosage: 40 MG/M2/D
  3. RADIATION TREATMENT [Concomitant]
     Dosage: 400 CGY
  4. CYCLOSPORINE [Suspect]

REACTIONS (9)
  - ACUTE RESPIRATORY FAILURE [None]
  - BLOOD ALKALINE PHOSPHATASE INCREASED [None]
  - BLOOD BILIRUBIN INCREASED [None]
  - CARDIAC FAILURE [None]
  - FEBRILE NEUTROPENIA [None]
  - HEARING IMPAIRED [None]
  - JAUNDICE [None]
  - PAIN IN EXTREMITY [None]
  - PRURITUS [None]
